FAERS Safety Report 25344614 (Version 1)
Quarter: 2025Q2

REPORT INFORMATION
  Report Type: Spontaneous
  Country: DZ (occurrence: DZ)
  Receive Date: 20250522
  Receipt Date: 20250522
  Transmission Date: 20250717
  Serious: Yes (Death, Other)
  Sender: BIOMARIN
  Company Number: DZ-SA-2025SA141779

PATIENT

DRUGS (3)
  1. LARONIDASE [Suspect]
     Active Substance: LARONIDASE
     Indication: Mucopolysaccharidosis I
     Route: 065
  2. EVOGLIPTIN TARTRATE [Concomitant]
     Active Substance: EVOGLIPTIN TARTRATE
     Indication: Product used for unknown indication
  3. Megatus [Concomitant]
     Indication: Product used for unknown indication

REACTIONS (5)
  - Respiratory distress [Fatal]
  - Sleep apnoea syndrome [Unknown]
  - Kyphoscoliosis [Unknown]
  - Cardiac disorder [Unknown]
  - Scoliosis [Unknown]
